FAERS Safety Report 19626333 (Version 1)
Quarter: 2021Q3

REPORT INFORMATION
  Report Type: Spontaneous
  Country: US (occurrence: US)
  Receive Date: 20210728
  Receipt Date: 20210728
  Transmission Date: 20211014
  Serious: Yes (Other)
  Sender: FDA-Public Use
  Company Number: None

PATIENT
  Sex: Male

DRUGS (2)
  1. HYDROCODONE 5MG [Suspect]
     Active Substance: HYDROCODONE
  2. HYDROCODONE 10 MG [Suspect]
     Active Substance: HYDROCODONE

REACTIONS (2)
  - Drug intolerance [None]
  - Nausea [None]
